FAERS Safety Report 10020007 (Version 1)
Quarter: 2014Q1

REPORT INFORMATION
  Report Type: Spontaneous
  Country: US (occurrence: US)
  Receive Date: 20140318
  Receipt Date: 20140318
  Transmission Date: 20141002
  Serious: Yes (Hospitalization)
  Sender: FDA-Public Use
  Company Number: US-B.I. PHARMACEUTICALS,INC./RIDGEFIELD-2014-BI-11255BP

PATIENT
  Age: 68 Year
  Sex: Male
  Weight: 82 kg

DRUGS (7)
  1. PRADAXA [Suspect]
     Indication: CEREBROVASCULAR ACCIDENT PROPHYLAXIS
     Dosage: 300 MG
     Route: 048
     Dates: start: 20130812
  2. PRADAXA [Suspect]
     Indication: ATRIAL FIBRILLATION
  3. VICTOZA [Concomitant]
     Indication: DIABETES MELLITUS
     Route: 065
  4. METFORMIN [Concomitant]
     Indication: DIABETES MELLITUS
     Route: 065
  5. ATORVASTATIN [Concomitant]
     Indication: HYPERCHOLESTEROLAEMIA
     Route: 065
  6. ASPIRIN [Concomitant]
     Indication: CORONARY ARTERY DISEASE
     Route: 065
  7. PLAVIX [Concomitant]
     Indication: CORONARY ARTERY DISEASE
     Route: 065

REACTIONS (4)
  - Brain stem infarction [Not Recovered/Not Resolved]
  - Diplopia [Unknown]
  - Creatinine renal clearance decreased [Unknown]
  - Activated partial thromboplastin time prolonged [Recovered/Resolved]
